FAERS Safety Report 9996601 (Version 1)
Quarter: 2014Q1

REPORT INFORMATION
  Report Type: Spontaneous
  Country: US (occurrence: None)
  Receive Date: 20140304
  Receipt Date: 20140304
  Transmission Date: 20141002
  Serious: Yes (Other)
  Sender: FDA-Public Use
  Company Number: RB-56142-2013

PATIENT
  Age: 28 Year
  Sex: Male

DRUGS (1)
  1. BUPRENORPHINE [Suspect]
     Indication: DRUG DEPENDENCE
     Dates: start: 20130626, end: 20130626

REACTIONS (7)
  - Pharyngeal oedema [None]
  - Wrong technique in drug usage process [None]
  - Dizziness [None]
  - Tremor [None]
  - Hyperhidrosis [None]
  - Dysphagia [None]
  - Heart rate increased [None]
